FAERS Safety Report 18306880 (Version 1)
Quarter: 2020Q3

REPORT INFORMATION
  Report Type: Other
  Country: NL (occurrence: NL)
  Receive Date: 20200924
  Receipt Date: 20200924
  Transmission Date: 20201103
  Serious: Yes (Other)
  Sender: FDA-Public Use
  Company Number: NL-COLLEGIUM PHARMACEUTICAL, INC.-2020CGM00231

PATIENT
  Age: 70 Year
  Sex: Male
  Weight: 76 kg

DRUGS (16)
  1. NUCYNTA ER [Suspect]
     Active Substance: TAPENTADOL HYDROCHLORIDE
     Indication: NEURALGIA
     Dosage: 500 MG, 1X/DAY (2X2 AND 2X3, SO 500 MG/DAY: 2?2?3?3)
     Dates: start: 201808
  2. OMEPRAZOL [Concomitant]
     Active Substance: OMEPRAZOLE
  3. ADVAGRAF [Concomitant]
     Active Substance: TACROLIMUS
  4. D?CURA [Concomitant]
  5. CALCI CHEW [Concomitant]
  6. NITROGLYCERINE [Concomitant]
     Active Substance: NITROGLYCERIN
     Dosage: 450 ?G ? 250 ZN
  7. PARACETAMOL [Concomitant]
     Active Substance: ACETAMINOPHEN
  8. ADVAGRAF [Concomitant]
     Active Substance: TACROLIMUS
  9. ADVAGRAF [Concomitant]
     Active Substance: TACROLIMUS
  10. NORTRILEN [Concomitant]
     Active Substance: NORTRIPTYLINE
  11. COMBODART [Concomitant]
     Active Substance: DUTASTERIDE\TAMSULOSIN
  12. METOPROLOL. [Concomitant]
     Active Substance: METOPROLOL
  13. ASCORBINEZUUR [Concomitant]
  14. PREDNISOLON [Concomitant]
     Active Substance: PREDNISOLONE
  15. ALLOPURINOL. [Concomitant]
     Active Substance: ALLOPURINOL
  16. DOMPERIDON [Concomitant]
     Active Substance: DOMPERIDONE

REACTIONS (2)
  - Constipation [Not Recovered/Not Resolved]
  - Dysphagia [Not Recovered/Not Resolved]

NARRATIVE: CASE EVENT DATE: 20180901
